FAERS Safety Report 12125704 (Version 2)
Quarter: 2016Q1

REPORT INFORMATION
  Report Type: Spontaneous
  Country: MX (occurrence: MX)
  Receive Date: 20160229
  Receipt Date: 20160301
  Transmission Date: 20160526
  Serious: Yes (Other)
  Sender: FDA-Public Use
  Company Number: MX-ROCHE-1715003

PATIENT
  Age: 65 Year
  Sex: Female

DRUGS (7)
  1. MOXIFLOXACIN. [Concomitant]
     Active Substance: MOXIFLOXACIN
     Route: 050
  2. DEXAMETHASONE. [Concomitant]
     Active Substance: DEXAMETHASONE
     Route: 050
  3. TETRACAINE. [Concomitant]
     Active Substance: TETRACAINE
  4. IODINE SOLUTION [Concomitant]
  5. AVASTIN [Suspect]
     Active Substance: BEVACIZUMAB
     Indication: MACULAR OEDEMA
     Route: 050
     Dates: start: 20160210, end: 20160210
  6. CEFTAZIDIME. [Concomitant]
     Active Substance: CEFTAZIDIME
     Route: 050
  7. VANCOMYCIN [Concomitant]
     Active Substance: VANCOMYCIN
     Route: 050

REACTIONS (8)
  - Periphlebitis [Recovered/Resolved]
  - Iridocyclitis [Recovered/Resolved]
  - Vitritis [Recovered/Resolved]
  - Endophthalmitis [Recovered/Resolved with Sequelae]
  - Off label use [Unknown]
  - Retinitis [Recovered/Resolved]
  - Suspected transmission of an infectious agent via product [Unknown]
  - Suspected counterfeit product [Unknown]

NARRATIVE: CASE EVENT DATE: 20160210
